FAERS Safety Report 10670432 (Version 1)
Quarter: 2014Q4

REPORT INFORMATION
  Report Type: Spontaneous
  Country: IT (occurrence: IT)
  Receive Date: 20141223
  Receipt Date: 20141223
  Transmission Date: 20150529
  Serious: Yes (Hospitalization)
  Sender: FDA-Public Use
  Company Number: IT-ASTRAZENECA-2014SE97212

PATIENT
  Age: 30257 Day
  Sex: Female

DRUGS (7)
  1. TENORETIC (ATENOLOL + CHLORTHALIDONE) [Concomitant]
     Indication: HYPERTENSION
     Dosage: 50MG + 12.5MG TABLET, ONE DOSAGE FORM UNKNOWN
     Route: 048
  2. TENORETIC (ATENOLOL + CHLORTHALIDONE) [Concomitant]
     Indication: HYPERTENSION
     Route: 048
  3. LASIX [Concomitant]
     Active Substance: FUROSEMIDE
     Indication: CARDIAC FAILURE
     Route: 048
  4. LANOXIN [Interacting]
     Active Substance: DIGOXIN
     Indication: CARDIAC FAILURE
     Route: 048
     Dates: start: 20141115, end: 20141205
  5. LASIX [Concomitant]
     Active Substance: FUROSEMIDE
     Indication: CARDIAC FAILURE
     Route: 048
  6. OMEPRAZOLE. [Suspect]
     Active Substance: OMEPRAZOLE
     Indication: PROPHYLAXIS AGAINST GASTROINTESTINAL ULCER
     Route: 048
     Dates: start: 20141128, end: 20141205
  7. CLEXANE (ENOXAPARIN) [Concomitant]
     Indication: THROMBOSIS PROPHYLAXIS
     Dosage: 4000 U.I. AXA/ 0.4ML SOLUTION FOR INJECTION, 8000 DOSAGE FORM
     Route: 048
     Dates: start: 20141128, end: 20141205

REACTIONS (2)
  - Toxicity to various agents [Unknown]
  - Drug interaction [Unknown]

NARRATIVE: CASE EVENT DATE: 20141205
